FAERS Safety Report 19513780 (Version 2)
Quarter: 2022Q2

REPORT INFORMATION
  Report Type: Spontaneous
  Country: US (occurrence: US)
  Receive Date: 20210709
  Receipt Date: 20220419
  Transmission Date: 20220721
  Serious: No
  Sender: FDA-Public Use
  Company Number: US-SA-2021SA200495

PATIENT
  Age: 17 Year
  Sex: Male

DRUGS (16)
  1. CLOBAZAM [Suspect]
     Active Substance: CLOBAZAM
     Indication: Epilepsy
     Dosage: UNK UNK, BID
     Route: 065
  2. VALPROIC ACID [Suspect]
     Active Substance: VALPROIC ACID
     Indication: Epilepsy
     Dosage: 250 MG
     Route: 048
  3. VALPROIC ACID [Suspect]
     Active Substance: VALPROIC ACID
     Dosage: 125 MG
     Route: 048
  4. VALPROIC ACID [Suspect]
     Active Substance: VALPROIC ACID
     Dosage: 250 MG
     Route: 048
  5. LEVETIRACETAM [Suspect]
     Active Substance: LEVETIRACETAM
     Indication: Epilepsy
     Dosage: UNK
     Route: 065
  6. LEVETIRACETAM [Suspect]
     Active Substance: LEVETIRACETAM
     Indication: Breath holding
  7. GABAPENTIN [Suspect]
     Active Substance: GABAPENTIN
     Indication: Epilepsy
     Dosage: 100 MG, TID
     Route: 065
  8. PRIMIDONE [Suspect]
     Active Substance: PRIMIDONE
     Indication: Epilepsy
     Dosage: 50 MG, HS
     Route: 065
  9. QUETIAPINE [Concomitant]
     Active Substance: QUETIAPINE
     Indication: Anxiety
     Dosage: 25 MG, QD (EVERY NIGHT)
     Route: 065
  10. RISPERIDONE [Concomitant]
     Active Substance: RISPERIDONE
     Indication: Anxiety
     Route: 065
  11. FLUOXETINE [Concomitant]
     Active Substance: FLUOXETINE HYDROCHLORIDE
     Indication: Anxiety
     Dosage: 2.5 MG, BID
     Route: 065
  12. AMANTADINE [Concomitant]
     Active Substance: AMANTADINE
     Indication: Anxiety
     Dosage: 75 MG
     Route: 065
  13. AMANTADINE [Concomitant]
     Active Substance: AMANTADINE
     Dosage: 50 MG
  14. ESCITALOPRAM [Concomitant]
     Active Substance: ESCITALOPRAM OXALATE
     Indication: Anxiety
     Dosage: 5 MG, QD
     Route: 065
  15. ARIPIPRAZOLE [Concomitant]
     Active Substance: ARIPIPRAZOLE
     Indication: Anxiety
     Dosage: 2 MG, QD
     Route: 065
  16. DESIPRAMINE [Concomitant]
     Active Substance: DESIPRAMINE
     Indication: Anxiety
     Dosage: 20 MG, BID
     Route: 065

REACTIONS (4)
  - Allergic oedema [Unknown]
  - Drug hypersensitivity [Unknown]
  - Drug ineffective [Unknown]
  - Eye swelling [Unknown]
